FAERS Safety Report 9866344 (Version 2)
Quarter: 2015Q1

REPORT INFORMATION
  Report Type: Spontaneous
  Country: US (occurrence: US)
  Receive Date: 20140203
  Receipt Date: 20150216
  Transmission Date: 20150721
  Serious: No
  Sender: FDA-Public Use
  Company Number: US-ALLERGAN-1319402US

PATIENT
  Age: 54 Year
  Sex: Female

DRUGS (4)
  1. RESTASIS [Suspect]
     Active Substance: CYCLOSPORINE
     Indication: DRY EYE
     Dosage: 2 GTT, BID
     Route: 047
     Dates: start: 201310
  2. VAGIFEM [Concomitant]
     Active Substance: ESTRADIOL
     Indication: SUPPLEMENTATION THERAPY
  3. KRILL OIL [Concomitant]
     Active Substance: DIETARY SUPPLEMENT
     Indication: EYE LUBRICATION THERAPY
  4. LIPITOR [Concomitant]
     Active Substance: ATORVASTATIN CALCIUM
     Indication: BLOOD CHOLESTEROL INCREASED
     Dosage: 10 MG, UNK
     Route: 048

REACTIONS (3)
  - Swelling face [Not Recovered/Not Resolved]
  - Scleral hyperaemia [Recovering/Resolving]
  - Eye irritation [Not Recovered/Not Resolved]
